FAERS Safety Report 23116407 (Version 1)
Quarter: 2023Q4

REPORT INFORMATION
  Report Type: Report from Study
  Country: US (occurrence: US)
  Receive Date: 20231027
  Receipt Date: 20231027
  Transmission Date: 20240110
  Serious: Yes (Other)
  Sender: FDA-Public Use
  Company Number: US-ABBVIE-5463599

PATIENT
  Sex: Male

DRUGS (1)
  1. RINVOQ [Suspect]
     Active Substance: UPADACITINIB
     Indication: Product used for unknown indication
     Route: 048
     Dates: start: 20230926

REACTIONS (8)
  - Chronic kidney disease [Unknown]
  - Fatigue [Unknown]
  - Adverse drug reaction [Not Recovered/Not Resolved]
  - Pollakiuria [Unknown]
  - Cough [Unknown]
  - Joint swelling [Unknown]
  - Bowel movement irregularity [Unknown]
  - Peripheral swelling [Unknown]

NARRATIVE: CASE EVENT DATE: 20230101
